FAERS Safety Report 6718256-9 (Version None)
Quarter: 2010Q2

REPORT INFORMATION
  Report Type: 
  Country: None (occurrence: None)
  Receive Date: 20100510
  Receipt Date: 20100429
  Transmission Date: 20101027
  Serious: Yes (Hospitalization)
  Sender: FDA-Public Use
  Company Number: CHPA2010US07584

PATIENT
  Age: 80 Year
  Sex: Female
  Weight: 81.633 kg

DRUGS (4)
  1. PRIVATE LABEL (NCH) [Suspect]
     Indication: SMOKING CESSATION THERAPY
     Dosage: 7 MG, QD
     Route: 062
     Dates: start: 20100401, end: 20100401
  2. PRIVATE LABEL (NCH) [Suspect]
     Dosage: 7 MG, QD
     Route: 062
     Dates: start: 20100401, end: 20100401
  3. ADVAIR DISKUS 100/50 [Concomitant]
     Indication: CHRONIC OBSTRUCTIVE PULMONARY DISEASE
  4. TOPROL-XL [Concomitant]
     Indication: HYPERTENSION

REACTIONS (3)
  - APPLICATION SITE RASH [None]
  - DYSPNOEA [None]
  - HYPERTENSION [None]
